FAERS Safety Report 7516311-7 (Version None)
Quarter: 2011Q2

REPORT INFORMATION
  Report Type: 
  Country: None (occurrence: None)
  Receive Date: 20110601
  Receipt Date: 20110527
  Transmission Date: 20111010
  Serious: Yes (Life-Threatening, Hospitalization, Other)
  Sender: FDA-Public Use
  Company Number: PHHY2011US13219

PATIENT
  Sex: Female
  Weight: 88.55 kg

DRUGS (30)
  1. POTASSIUM CHLORIDE [Concomitant]
     Route: 048
     Dates: start: 20100218
  2. CLOPIDOGREL SULFATE [Concomitant]
     Dosage: 75 MG, EVERY DAY
  3. EXJADE [Suspect]
     Indication: IRON OVERLOAD
     Dosage: 500 MG, DAILY
     Route: 048
     Dates: start: 20110101, end: 20110501
  4. CARTIA XT [Concomitant]
     Dosage: 120 MG, UNK
     Dates: start: 20110218
  5. FUROSEMIDE [Concomitant]
     Dosage: 40 MG, BID
     Route: 048
  6. LEVOTHYROXINE SODIUM [Concomitant]
     Dosage: 125 MG, EVERY DAY
     Route: 048
  7. PRAZOSIN HCL [Concomitant]
     Dosage: 20 MG, UNK
     Dates: start: 20110218
  8. POTASSIUM CHLORIDE [Concomitant]
     Dosage: 20 MEQ, BID
     Route: 048
  9. EXJADE [Suspect]
     Indication: MYELODYSPLASTIC SYNDROME
     Dosage: 500 MG, TID
     Route: 048
     Dates: start: 20110127
  10. VESICARE [Concomitant]
     Dosage: 5 MG, UNK
     Dates: start: 20110218
  11. SYSTEN [Concomitant]
  12. PANTOPRAZOLE SODIUM [Concomitant]
     Dosage: 40 MG, EVERY DAY
     Route: 048
  13. PLAVIX [Concomitant]
     Dosage: 75 MG, UNK
     Dates: start: 20100218
  14. TOVIAZ [Concomitant]
     Dosage: 4 MG, UNK
     Dates: start: 20110218
  15. ARANESP [Concomitant]
     Dates: start: 20110218
  16. SYSTANE (PROPYLENE GLYCOL/MACROGOL) [Concomitant]
  17. PROTONIX [Concomitant]
     Dosage: UNK
  18. NEUPOGEN [Concomitant]
     Dates: start: 20110218
  19. CLOPIDOGREL [Concomitant]
  20. SYNTHROID [Concomitant]
     Dosage: 25 UG, UNK
     Dates: start: 20110218
  21. XYZAL [Concomitant]
     Dosage: 5 MG, UNK
     Dates: start: 20110218
  22. ALLOPURINOL [Concomitant]
     Dosage: 300 MG, UNK
     Dates: start: 20110221
  23. LEVOTHYROXINE SODIUM [Concomitant]
  24. DARIFENACIN HYDROBROMIDE [Concomitant]
     Dosage: UNK, EVERY DAY
  25. AMOXICILLIN AND CLAVULANATE POTASSIUM [Concomitant]
     Dosage: 500 MG, TID
  26. LASIX [Concomitant]
     Dosage: 20 MG, UNK
     Dates: start: 20110218
  27. ENABLEX [Concomitant]
     Dosage: 7.5 MG, UNK
     Dates: start: 20110218
  28. AMOXICILLIN [Concomitant]
  29. DILTIAZEM HCL [Concomitant]
     Dosage: 300 MG, EVERY DAY
  30. MOXIFLOXACIN HYDROCHLORIDE [Concomitant]
     Dosage: 0.5 MG, UNK

REACTIONS (11)
  - THROMBOCYTOPENIA [None]
  - NEUTROPHIL COUNT DECREASED [None]
  - LEUKOPENIA [None]
  - DIARRHOEA [None]
  - EPISTAXIS [None]
  - NEUTROPENIA [None]
  - NEOPLASM PROGRESSION [None]
  - HAEMOGLOBIN DECREASED [None]
  - NEOPLASM MALIGNANT [None]
  - ANAEMIA [None]
  - WHITE BLOOD CELL COUNT DECREASED [None]
